FAERS Safety Report 8621806-9 (Version None)
Quarter: 2012Q3

REPORT INFORMATION
  Report Type: 
  Country: None (occurrence: None)
  Receive Date: 20120822
  Receipt Date: 20120822
  Transmission Date: 20120928
  Serious: Yes (Other)
  Sender: FDA-Public Use
  Company Number: None

PATIENT
  Age: 11 Year
  Sex: Female
  Weight: 66.2252 kg

DRUGS (2)
  1. DEPAKOTE ER [Suspect]
     Indication: AUTISM
     Dosage: 500 MG, 2XDAY, IMD
  2. DEPAKOTE ER [Suspect]
     Indication: ATTENTION DEFICIT/HYPERACTIVITY DISORDER
     Dosage: 500 MG, 2XDAY, IMD

REACTIONS (3)
  - CRYING [None]
  - PRODUCT SUBSTITUTION ISSUE [None]
  - DRUG INEFFECTIVE [None]
